FAERS Safety Report 4611937-2 (Version None)
Quarter: 2005Q2

REPORT INFORMATION
  Report Type: 
  Country: None (occurrence: None)
  Receive Date: 20050308
  Receipt Date: 20041221
  Transmission Date: 20051028
  Serious: Yes (Hospitalization)
  Sender: FDA-Public Use
  Company Number: 2004UW25666

PATIENT
  Age: 75 Year
  Sex: Male

DRUGS (8)
  1. CRESTOR [Suspect]
     Dosage: 10 MG PO
     Dates: start: 20031107
  2. SEREVENT [Concomitant]
  3. FLOVENT [Concomitant]
  4. PILOPINE HS [Concomitant]
  5. VERAPAMIL [Concomitant]
  6. TRANSDERM-NITRO [Concomitant]
  7. COUMADIN [Concomitant]
  8. SOTALOL HCL [Concomitant]

REACTIONS (1)
  - PHARYNGITIS [None]
